FAERS Safety Report 23441148 (Version 1)
Quarter: 2024Q1

REPORT INFORMATION
  Report Type: Spontaneous
  Country: GB (occurrence: GB)
  Receive Date: 20240125
  Receipt Date: 20240125
  Transmission Date: 20240409
  Serious: Yes (Other)
  Sender: FDA-Public Use
  Company Number: GB-EPICPHARMA-GB-2024EPCLIT00054

PATIENT
  Age: 67 Year
  Sex: Male

DRUGS (1)
  1. LATANOPROST [Suspect]
     Active Substance: LATANOPROST
     Indication: Open angle glaucoma
     Route: 047

REACTIONS (2)
  - Ocular surface disease [Recovered/Resolved]
  - Ocular toxicity [Recovered/Resolved]
